FAERS Safety Report 14683668 (Version 1)
Quarter: 2018Q1

REPORT INFORMATION
  Report Type: Spontaneous
  Country: DE (occurrence: DE)
  Receive Date: 20180327
  Receipt Date: 20180327
  Transmission Date: 20180509
  Serious: Yes (Other)
  Sender: FDA-Public Use
  Company Number: PHHY2018DE052336

PATIENT
  Sex: Female

DRUGS (1)
  1. VOTRIENT [Suspect]
     Active Substance: PAZOPANIB HYDROCHLORIDE
     Indication: PRODUCT USED FOR UNKNOWN INDICATION
     Dosage: 400 MG, BID
     Route: 065
     Dates: start: 201707

REACTIONS (8)
  - Weight decreased [Unknown]
  - Bronchitis [Unknown]
  - Diarrhoea [Unknown]
  - Metastases to lung [Unknown]
  - Abdominal pain [Unknown]
  - Eyelid oedema [Unknown]
  - Malignant neoplasm progression [Unknown]
  - Oropharyngeal pain [Unknown]

NARRATIVE: CASE EVENT DATE: 20180320
